FAERS Safety Report 19856144 (Version 1)
Quarter: 2021Q3

REPORT INFORMATION
  Report Type: Spontaneous
  Country: CA (occurrence: CA)
  Receive Date: 20210920
  Receipt Date: 20210920
  Transmission Date: 20211014
  Serious: Yes (Other)
  Sender: FDA-Public Use
  Company Number: CA-TEVA-2021-CA-1953017

PATIENT
  Age: 5 Decade
  Sex: Female
  Weight: 72 kg

DRUGS (5)
  1. LEFLUNOMIDE. [Suspect]
     Active Substance: LEFLUNOMIDE
     Indication: PRODUCT USED FOR UNKNOWN INDICATION
     Route: 065
  2. METHOTREXATE. [Suspect]
     Active Substance: METHOTREXATE
     Indication: PSORIATIC ARTHROPATHY
     Route: 058
  3. PANTOLOC[PANTOPRAZOLE] [Concomitant]
  4. ZOPICLONE [Concomitant]
     Active Substance: ZOPICLONE
  5. CEFIXIME. [Concomitant]
     Active Substance: CEFIXIME

REACTIONS (8)
  - Suicidal ideation [Unknown]
  - Nail disorder [Unknown]
  - Alopecia [Unknown]
  - Nail discolouration [Unknown]
  - Off label use [Unknown]
  - Product use issue [Unknown]
  - Onychoclasis [Unknown]
  - Madarosis [Unknown]
